FAERS Safety Report 5008672-8 (Version None)
Quarter: 2006Q2

REPORT INFORMATION
  Report Type: 
  Country: None (occurrence: None)
  Receive Date: 20060523
  Receipt Date: 20060508
  Transmission Date: 20061013
  Serious: Yes (Other)
  Sender: FDA-Public Use
  Company Number: NL-GLAXOSMITHKLINE-B0423723A

PATIENT
  Age: 81 Year
  Sex: Male

DRUGS (8)
  1. AVODART [Suspect]
     Dosage: .5MG PER DAY
     Route: 065
     Dates: start: 20050708
  2. DEPAKENE [Concomitant]
     Dosage: 500MG TWICE PER DAY
  3. OMEPRAZOLE [Concomitant]
     Dosage: 20MG PER DAY
  4. MOVICOLON [Concomitant]
     Dosage: 1U PER DAY
  5. COTRIMOXAZOLE [Concomitant]
     Dosage: 480MG PER DAY
  6. FUROSEMIDE [Concomitant]
     Indication: CARDIAC FAILURE
  7. LIPITOR [Concomitant]
  8. CARBASALATE CALCIUM [Concomitant]
     Dosage: 100MG PER DAY

REACTIONS (4)
  - CONVULSION [None]
  - EPILEPSY [None]
  - FLUID RETENTION [None]
  - WEIGHT DECREASED [None]
